FAERS Safety Report 17222608 (Version 5)
Quarter: 2023Q2

REPORT INFORMATION
  Report Type: Other
  Country: GB (occurrence: GB)
  Receive Date: 20200102
  Receipt Date: 20230615
  Transmission Date: 20230722
  Serious: Yes (Death, Hospitalization, Congenital Anomaly, Other)
  Sender: FDA-Public Use
  Company Number: GB-EMA-DD-20190508-SAHU_K-153427

PATIENT

DRUGS (12)
  1. METFORMIN [Suspect]
     Active Substance: METFORMIN HYDROCHLORIDE
     Indication: Product used for unknown indication
     Dosage: UNK
     Route: 065
  2. TRUVADA [Suspect]
     Active Substance: EMTRICITABINE\TENOFOVIR DISOPROXIL FUMARATE
     Indication: HIV infection
     Dosage: 1 DOSAGE FORM, QD
     Route: 048
     Dates: start: 20171006, end: 20180205
  3. EFAVIRENZ [Suspect]
     Active Substance: EFAVIRENZ
     Indication: HIV infection
     Dosage: 1 DOSAGE FORM, QD
     Route: 048
     Dates: start: 20171006
  4. LABETALOL [Suspect]
     Active Substance: LABETALOL\LABETALOL HYDROCHLORIDE
     Indication: Product used for unknown indication
     Dosage: UNK
     Route: 065
  5. EMTRICITABINE\TENOFOVIR DISOPROXIL FUMARATE [Suspect]
     Active Substance: EMTRICITABINE\TENOFOVIR DISOPROXIL FUMARATE
     Indication: HIV infection
     Dosage: 1 DOSAGE FORM, QD
     Route: 048
     Dates: start: 20171006
  6. EMTRICITABINE\TENOFOVIR DISOPROXIL FUMARATE [Suspect]
     Active Substance: EMTRICITABINE\TENOFOVIR DISOPROXIL FUMARATE
     Dosage: 1 DOSAGE FORM, QD
     Route: 048
     Dates: start: 20180205
  7. FOLATE SODIUM [Suspect]
     Active Substance: FOLATE SODIUM
     Indication: Supplementation therapy
     Dosage: UNK
     Route: 065
  8. INSULIN ASPART [Suspect]
     Active Substance: INSULIN ASPART
     Indication: Product used for unknown indication
     Dosage: UNK
     Route: 065
  9. KALETRA [Suspect]
     Active Substance: LOPINAVIR\RITONAVIR
     Indication: HIV infection
     Dosage: UNK
     Route: 048
     Dates: start: 20100610
  10. LAMIVUDINE [Suspect]
     Active Substance: LAMIVUDINE
     Indication: Foetal exposure during pregnancy
     Dosage: 300 MILLIGRAM
     Route: 048
     Dates: start: 20090101, end: 20100610
  11. TENOFOVIR DISOPROXIL [Suspect]
     Active Substance: TENOFOVIR DISOPROXIL
     Indication: HIV infection
     Dosage: 1 DOSAGE FORM
     Route: 065
     Dates: start: 20171006, end: 20180205
  12. EMTRICITABINE [Suspect]
     Active Substance: EMTRICITABINE
     Indication: HIV infection
     Dosage: 1 DOSAGE FORM, QD
     Route: 065
     Dates: start: 20171006, end: 20180205

REACTIONS (14)
  - Abortion spontaneous [Fatal]
  - Cleft lip and palate [Fatal]
  - Hepatic cytolysis [Fatal]
  - Ultrasound antenatal screen [Fatal]
  - Off label use [Fatal]
  - Aspartate aminotransferase increased [Fatal]
  - Hydrops foetalis [Fatal]
  - Alanine aminotransferase increased [Fatal]
  - Trisomy 18 [Fatal]
  - Intentional product use issue [Fatal]
  - Drug abuse [Fatal]
  - Foetal exposure during pregnancy [Fatal]
  - Exposure during pregnancy [Fatal]
  - Maternal exposure during pregnancy [Unknown]

NARRATIVE: CASE EVENT DATE: 20120521
